FAERS Safety Report 24869504 (Version 1)
Quarter: 2025Q1

REPORT INFORMATION
  Report Type: Spontaneous
  Country: JP (occurrence: JP)
  Receive Date: 20250121
  Receipt Date: 20250121
  Transmission Date: 20250408
  Serious: Yes (Other)
  Sender: PFIZER
  Company Number: JP-PFIZER INC-PV202500003256

PATIENT
  Age: 41 Year
  Sex: Male
  Weight: 41 kg

DRUGS (2)
  1. HYDROCORTISONE [Suspect]
     Active Substance: HYDROCORTISONE
     Indication: Hormone replacement therapy
     Dosage: 20 MG, DAILY
     Dates: start: 19910523
  2. HYDROCORTISONE [Suspect]
     Active Substance: HYDROCORTISONE
     Indication: Adrenocorticotropic hormone deficiency

REACTIONS (3)
  - Depressed level of consciousness [Unknown]
  - Hyperammonaemia [Unknown]
  - Increased appetite [Unknown]

NARRATIVE: CASE EVENT DATE: 19910621
